FAERS Safety Report 21451870 (Version 3)
Quarter: 2022Q4

REPORT INFORMATION
  Report Type: Spontaneous
  Country: JP (occurrence: JP)
  Receive Date: 20221013
  Receipt Date: 20221220
  Transmission Date: 20230112
  Serious: Yes (Hospitalization)
  Sender: FDA-Public Use
  Company Number: JP-ELI_LILLY_AND_COMPANY-JP202210002854

PATIENT
  Age: 65 Year

DRUGS (2)
  1. CYRAMZA [Suspect]
     Active Substance: RAMUCIRUMAB
     Indication: Gastric cancer
     Dosage: 8 MG/KG, OTHER
     Route: 041
  2. ABRAXANE [Concomitant]
     Active Substance: PACLITAXEL
     Indication: Gastric cancer
     Route: 041

REACTIONS (4)
  - Gastric varices [Not Recovered/Not Resolved]
  - Pyogenic granuloma [Recovering/Resolving]
  - Gastrointestinal anastomotic haemorrhage [Recovering/Resolving]
  - Portal hypertension [Unknown]
